FAERS Safety Report 4451613-2 (Version None)
Quarter: 2004Q3

REPORT INFORMATION
  Report Type: 
  Country: None (occurrence: None)
  Receive Date: 20040915
  Receipt Date: 20040830
  Transmission Date: 20050211
  Serious: No
  Sender: FDA-Public Use
  Company Number: 04H-163-0271871-00

PATIENT
  Sex: 0

DRUGS (1)
  1. PONTOCAINE HCL 2%, USP, FOR RHINOLARYNGOLOGY (PONTOCAINE HYDROCHLORIDE [Suspect]
     Dates: start: 20040824

REACTIONS (2)
  - LOSS OF CONSCIOUSNESS [None]
  - VOMITING [None]
